FAERS Safety Report 9049045 (Version 1)
Quarter: 2013Q1

REPORT INFORMATION
  Report Type: Spontaneous
  Country: US (occurrence: US)
  Receive Date: 20130204
  Receipt Date: 20130204
  Transmission Date: 20140127
  Serious: No
  Sender: FDA-Public Use
  Company Number: US-AMGEN-USASP2013003562

PATIENT
  Age: 45 Year
  Sex: Female

DRUGS (5)
  1. ENBREL [Suspect]
     Indication: ANKYLOSING SPONDYLITIS
     Dosage: 50 MG, QWK
     Route: 058
     Dates: start: 20110212, end: 20120424
  2. OXYCODONE [Concomitant]
     Indication: PAIN
     Dosage: 30 MG, UNK
     Route: 048
     Dates: start: 2011
  3. SOMA [Concomitant]
     Dosage: 30 MG, UNK
     Route: 048
     Dates: start: 2011
  4. ZOLPIDEM [Concomitant]
     Indication: DEPRESSION
     Dosage: 10 MG, UNK
     Route: 048
     Dates: start: 2011
  5. OPANA [Concomitant]
     Indication: PAIN
     Dosage: 20 MG, UNK
     Route: 048
     Dates: start: 2011

REACTIONS (4)
  - Hot flush [Not Recovered/Not Resolved]
  - Headache [Recovered/Resolved]
  - Epstein-Barr virus infection [Not Recovered/Not Resolved]
  - Sinusitis [Recovered/Resolved]
